FAERS Safety Report 9494025 (Version 1)
Quarter: 2013Q3

REPORT INFORMATION
  Report Type: Spontaneous
  Country: US (occurrence: None)
  Receive Date: 20130829
  Receipt Date: 20130829
  Transmission Date: 20140515
  Serious: Yes (Other)
  Sender: FDA-Public Use
  Company Number: None

PATIENT
  Age: 4 Year
  Sex: Female
  Weight: 26.31 kg

DRUGS (2)
  1. RISPERDAL [Suspect]
     Indication: IRRITABILITY
     Dosage: .25ML QAM PO
     Route: 048
     Dates: start: 20090622, end: 20130828
  2. RISPERDAL [Suspect]
     Indication: MOOD SWINGS
     Dosage: .25ML QAM PO
     Route: 048
     Dates: start: 20090622, end: 20130828

REACTIONS (4)
  - Product substitution issue [None]
  - Aggression [None]
  - Irritability [None]
  - Frustration [None]
